FAERS Safety Report 5565617-X (Version None)
Quarter: 2007Q4

REPORT INFORMATION
  Report Type: 
  Country: None (occurrence: None)
  Receive Date: 20071218
  Receipt Date: 20071129
  Transmission Date: 20080405
  Serious: No
  Sender: FDA-Public Use
  Company Number: US-BOEHRINGER INGELHEIM PHARMACEUTICALS, INC.-2007-BP-03768BP

PATIENT
  Sex: Male

DRUGS (7)
  1. FLOMAX [Suspect]
     Indication: URINARY INCONTINENCE
     Route: 048
     Dates: start: 20070101, end: 20070301
  2. FLOMAX [Suspect]
     Indication: BENIGN PROSTATIC HYPERPLASIA
     Route: 048
     Dates: start: 20070401, end: 20070801
  3. DETROL LA [Suspect]
     Indication: URINARY INCONTINENCE
  4. HIGH BLOOD PRESSURE MEDICATIONS [Concomitant]
  5. ASPIRIN [Concomitant]
     Route: 048
  6. OMEGA 3 [Concomitant]
     Route: 048
  7. LISINOPRIL [Concomitant]
     Indication: BLOOD PRESSURE INCREASED
     Route: 048

REACTIONS (2)
  - DRUG INEFFECTIVE [None]
  - URINARY INCONTINENCE [None]
